FAERS Safety Report 9917997 (Version 2)
Quarter: 2014Q1

REPORT INFORMATION
  Report Type: Spontaneous
  Country: US (occurrence: US)
  Receive Date: 20140222
  Receipt Date: 20140222
  Transmission Date: 20141002
  Serious: Yes (Other)
  Sender: FDA-Public Use
  Company Number: US-ABBVIE-11P-163-0804194-00

PATIENT
  Age: 63 Year
  Sex: Male
  Weight: 74.91 kg

DRUGS (12)
  1. ANDROGEL [Suspect]
     Indication: PROLACTINOMA
     Route: 061
     Dates: start: 2000, end: 2009
  2. ANDROGEL [Suspect]
     Indication: FATIGUE
     Route: 061
     Dates: start: 2011, end: 2012
  3. ANDROGEL [Suspect]
     Indication: BLOOD TESTOSTERONE DECREASED
  4. ANDROGEL [Suspect]
     Indication: HYPOGONADISM
  5. ANDROGEL [Suspect]
     Indication: HYPOGONADISM
     Dosage: 3 PUMPS DAILY
     Route: 061
     Dates: start: 2012, end: 201206
  6. ANDROGEL [Suspect]
     Dosage: 2 PUMPS IN AM AND 2 PUMPS IN PM
     Route: 061
     Dates: start: 201206
  7. GABAPENTIN [Concomitant]
     Indication: HERNIA PAIN
     Route: 065
  8. COZAAR [Concomitant]
     Indication: PRODUCT USED FOR UNKNOWN INDICATION
  9. CIALIS [Concomitant]
     Indication: PRODUCT USED FOR UNKNOWN INDICATION
  10. CRESTOR [Concomitant]
     Indication: PRODUCT USED FOR UNKNOWN INDICATION
  11. VITAMIN D [Concomitant]
     Indication: PRODUCT USED FOR UNKNOWN INDICATION
  12. UNKNOWN OTC VITAMIN [Concomitant]
     Indication: EYE DISORDER

REACTIONS (13)
  - Skin cancer [Recovered/Resolved]
  - Erythema [Not Recovered/Not Resolved]
  - Skin warm [Not Recovered/Not Resolved]
  - Prostatic specific antigen increased [Recovered/Resolved]
  - Blood luteinising hormone decreased [Not Recovered/Not Resolved]
  - Blood follicle stimulating hormone decreased [Not Recovered/Not Resolved]
  - Precancerous skin lesion [Not Recovered/Not Resolved]
  - Prostatic specific antigen abnormal [Not Recovered/Not Resolved]
  - Benign prostatic hyperplasia [Not Recovered/Not Resolved]
  - Inappropriate schedule of drug administration [Not Recovered/Not Resolved]
  - Incorrect dose administered [Recovered/Resolved]
  - Blood testosterone increased [Unknown]
  - Blood testosterone decreased [Recovered/Resolved]
